FAERS Safety Report 9614419 (Version 1)
Quarter: 2013Q4

REPORT INFORMATION
  Report Type: Report from Study
  Country: US (occurrence: US)
  Receive Date: 20131011
  Receipt Date: 20131011
  Transmission Date: 20140711
  Serious: Yes (Death)
  Sender: FDA-Public Use
  Company Number: US-ROCHE-1287833

PATIENT
  Sex: Female

DRUGS (4)
  1. AVASTIN [Suspect]
     Indication: BRAIN NEOPLASM MALIGNANT
     Route: 042
  2. AVASTIN [Suspect]
     Indication: NEOPLASM MALIGNANT
  3. NEULASTA [Concomitant]
     Route: 065
  4. KEPPRA [Concomitant]

REACTIONS (1)
  - Death [Fatal]
